FAERS Safety Report 9195789 (Version 2)
Quarter: 2013Q3

REPORT INFORMATION
  Report Type: Spontaneous
  Country: US (occurrence: None)
  Receive Date: 20120703
  Receipt Date: 20130724
  Transmission Date: 20140515
  Serious: No
  Sender: FDA-Public Use
  Company Number: PHEH2012US006777

PATIENT
  Age: 49 Year
  Sex: Female

DRUGS (14)
  1. GILENYA (FTY) CAPSULE, 0.5MG [Suspect]
     Route: 048
  2. PRAMIPEXOLE (PRAMIPEXOLE) TABLET, 0.25 MG [Concomitant]
  3. ZOLOFT (SERTRALINE HYDROCHLORIDE) TABLET, 25 MG [Concomitant]
  4. PREVACID (LANSOPRAZOLE) , 15 MG [Concomitant]
  5. POTASSIUM (POTASSIUM) TABLET, 75 MG [Concomitant]
  6. ADDERALL (AMFETAMIE ASPARTATE, AMFETAMINE SULFATE, DEXAMFETAMINE SACCHARATE, DEXAMFETAMINE SULFATE) TABLET, 10 MG [Concomitant]
  7. XANAX (ALPRAZOLAM) [Concomitant]
  8. TRAMADOL (TRAMADOL) TABLET, 100 MG [Concomitant]
  9. HYDROCHLOROTHIAZIDE (HYDROCHLOROTHIAZIDE) CAPSULE, 12.5 MG [Concomitant]
  10. LAMOTRIGIN (LAMOTRIGINE) TABLET, 100 MG [Concomitant]
  11. GINSENG (GINSENG, GINSENG NOS) CAPSULE, 100 MG [Concomitant]
  12. SIMVASTATIN (SIMVASTATIN) TABLET, 5MG [Concomitant]
  13. AMLODIPINE (AMLODIPINE) [Concomitant]
  14. BENADRY (AMMONIUM CHLORIDE, DIPHENYDRAMINE HYDROCHLORIDE, MENTHOL, SODIUM CITRATE) [Concomitant]

REACTIONS (3)
  - Fatigue [None]
  - Diarrhoea [None]
  - Headache [None]
